FAERS Safety Report 5662253-1 (Version None)
Quarter: 2008Q1

REPORT INFORMATION
  Report Type: 
  Country: None (occurrence: None)
  Receive Date: 20080312
  Receipt Date: 20080304
  Transmission Date: 20080703
  Serious: Yes (Other)
  Sender: FDA-Public Use
  Company Number: JP-PFIZER INC-2008019927

PATIENT
  Sex: Male

DRUGS (10)
  1. RELPAX [Suspect]
     Indication: MIGRAINE
     Route: 048
     Dates: start: 20050215, end: 20050221
  2. ALL OTHER THERAPEUTIC PRODUCTS [Concomitant]
  3. TERNELIN [Concomitant]
     Route: 048
  4. CEROCRAL [Concomitant]
     Route: 048
  5. PLETAL [Concomitant]
     Route: 048
  6. POTACOL-R [Concomitant]
     Route: 042
  7. ALPROSTADIL [Concomitant]
     Route: 042
  8. NEUROTROPIN [Concomitant]
     Route: 042
  9. KETOPROFEN [Concomitant]
  10. FLURBIPROFEN [Concomitant]

REACTIONS (9)
  - ACTIVITIES OF DAILY LIVING IMPAIRED [None]
  - CARDIAC DISCOMFORT [None]
  - CHEST DISCOMFORT [None]
  - DIZZINESS [None]
  - HEADACHE [None]
  - INSOMNIA [None]
  - MENTAL IMPAIRMENT [None]
  - STRESS [None]
  - TINNITUS [None]
